FAERS Safety Report 12368177 (Version 1)
Quarter: 2016Q2

REPORT INFORMATION
  Report Type: Spontaneous
  Country: US (occurrence: US)
  Receive Date: 20160513
  Receipt Date: 20160513
  Transmission Date: 20160815
  Serious: No
  Sender: FDA-Public Use
  Company Number: US-JNJFOC-20160403850

PATIENT
  Age: 50 Year
  Sex: Female
  Weight: 49.9 kg

DRUGS (2)
  1. WOMENS ROGAINE UNSCENTED [Suspect]
     Active Substance: MINOXIDIL
     Route: 061
  2. WOMENS ROGAINE UNSCENTED [Suspect]
     Active Substance: MINOXIDIL
     Indication: ALOPECIA
     Dosage: HALF CAP FULL, AT NIGHT
     Route: 061
     Dates: start: 20160201

REACTIONS (2)
  - Trichorrhexis [Recovering/Resolving]
  - Hair injury [Recovering/Resolving]

NARRATIVE: CASE EVENT DATE: 20160203
